FAERS Safety Report 9852917 (Version 1)
Quarter: 2014Q1

REPORT INFORMATION
  Report Type: Spontaneous
  Country: US (occurrence: None)
  Receive Date: 20140128
  Receipt Date: 20140128
  Transmission Date: 20141002
  Serious: No
  Sender: FDA-Public Use
  Company Number: None

PATIENT
  Age: 36 Year
  Sex: Male
  Weight: 90.27 kg

DRUGS (5)
  1. CIPROFLOXACIN [Suspect]
     Indication: URINARY TRACT INFECTION
     Route: 048
     Dates: start: 20140116, end: 20140124
  2. VISTARIL [Concomitant]
  3. DEPAKENE [Concomitant]
  4. RISPERDAL [Concomitant]
  5. ZOLOFT [Concomitant]

REACTIONS (1)
  - Rash maculo-papular [None]
